FAERS Safety Report 21229933 (Version 3)
Quarter: 2024Q3

REPORT INFORMATION
  Report Type: Spontaneous
  Country: US (occurrence: US)
  Receive Date: 20220818
  Receipt Date: 20240919
  Transmission Date: 20241017
  Serious: No
  Sender: SANOFI AVENTIS
  Company Number: US-SA-SAC20220812001431

PATIENT
  Age: 3 Year
  Sex: Male

DRUGS (13)
  1. DUPIXENT [Suspect]
     Active Substance: DUPILUMAB
     Indication: Dermatitis atopic
     Dosage: 300 MG, Q4W
     Route: 058
     Dates: start: 20220730
  2. MONTELUKAST SODIUM [Concomitant]
     Active Substance: MONTELUKAST\MONTELUKAST SODIUM
  3. ALBUTEROL [Concomitant]
     Active Substance: ALBUTEROL
  4. AZITHROMYCIN [Concomitant]
     Active Substance: AZITHROMYCIN
  5. BUDESONIDE [Concomitant]
     Active Substance: BUDESONIDE
  6. CIPROFLOXACIN HYDROCHLORIDE [Concomitant]
     Active Substance: CIPROFLOXACIN HYDROCHLORIDE
  7. NEXIUM I.V. [Concomitant]
     Active Substance: ESOMEPRAZOLE SODIUM
  8. OFLOXACIN [Concomitant]
     Active Substance: OFLOXACIN
  9. SINGULAIR [Concomitant]
     Active Substance: MONTELUKAST SODIUM
  10. TRIAMCINOLONE [Concomitant]
     Active Substance: TRIAMCINOLONE
  11. ZYRTEC [Concomitant]
     Active Substance: CETIRIZINE HYDROCHLORIDE
  12. FLONASE [Concomitant]
     Active Substance: FLUTICASONE PROPIONATE
  13. VITAMINS NOS [Concomitant]
     Active Substance: VITAMINS

REACTIONS (11)
  - Otorrhoea [Unknown]
  - Scratch [Recovering/Resolving]
  - Scab [Unknown]
  - Dry skin [Unknown]
  - Skin haemorrhage [Unknown]
  - Ear haemorrhage [Recovered/Resolved]
  - Ear infection [Not Recovered/Not Resolved]
  - Skin exfoliation [Unknown]
  - Pruritus [Recovering/Resolving]
  - Ear operation [Unknown]
  - Ear tube removal [Unknown]

NARRATIVE: CASE EVENT DATE: 20240801
